FAERS Safety Report 7870328-1 (Version None)
Quarter: 2011Q4

REPORT INFORMATION
  Report Type: 
  Country: None (occurrence: None)
  Receive Date: 20111028
  Receipt Date: 20111028
  Transmission Date: 20120403
  Serious: Yes (Life-Threatening, Hospitalization)
  Sender: FDA-Public Use
  Company Number: None

PATIENT
  Age: 63 Year
  Sex: Male
  Weight: 91.4 kg

DRUGS (2)
  1. DILTIAZEM HCL [Suspect]
     Indication: HYPERTENSION
     Dosage: 300 MG, EVERY DAY, PO
     Route: 048
     Dates: start: 20100927, end: 20110405
  2. METOPROLOL TARTRATE [Suspect]
     Indication: HYPERTENSION
     Dosage: 12.5 MG, BID, PO
     Route: 048
     Dates: start: 20110225, end: 20110405

REACTIONS (2)
  - BRADYCARDIA [None]
  - SYNCOPE [None]
